FAERS Safety Report 5334874-7 (Version None)
Quarter: 2007Q2

REPORT INFORMATION
  Report Type: 
  Country: None (occurrence: None)
  Receive Date: 20070525
  Receipt Date: 20070516
  Transmission Date: 20071010
  Serious: Yes (Other)
  Sender: FDA-Public Use
  Company Number: DE-ASTRAZENECA-2007PK00890

PATIENT
  Age: 123 Month
  Sex: Male
  Weight: 30 kg

DRUGS (1)
  1. EMLA [Suspect]
     Indication: MOLLUSCUM CONTAGIOSUM
     Route: 061
     Dates: start: 20070412, end: 20070412

REACTIONS (4)
  - CIRCULATORY COLLAPSE [None]
  - DIZZINESS [None]
  - DRUG TOXICITY [None]
  - NAUSEA [None]
